FAERS Safety Report 14327619 (Version 1)
Quarter: 2017Q4

REPORT INFORMATION
  Report Type: Spontaneous
  Country: ES (occurrence: ES)
  Receive Date: 20171227
  Receipt Date: 20171227
  Transmission Date: 20180321
  Serious: Yes (Life-Threatening, Hospitalization)
  Sender: FDA-Public Use
  Company Number: ES-AUROBINDO-AUR-APL-2017-47392

PATIENT
  Age: 80 Year
  Sex: Male

DRUGS (3)
  1. NAPROXEN TABLET [Suspect]
     Active Substance: NAPROXEN
     Indication: PRODUCT USED FOR UNKNOWN INDICATION
     Dosage: UNK
     Route: 048
  2. AMOXICILLIN. [Suspect]
     Active Substance: AMOXICILLIN
     Indication: PRODUCT USED FOR UNKNOWN INDICATION
     Dosage: 2 G, UNK
     Route: 042
  3. TETANUS TOXOID [Suspect]
     Active Substance: TETANUS TOXOIDS
     Indication: IMMUNISATION
     Dosage: UNK
     Route: 065

REACTIONS (5)
  - Type I hypersensitivity [Recovered/Resolved]
  - Cardiac arrest [Recovered/Resolved]
  - Vision blurred [Recovered/Resolved]
  - Anaphylactic reaction [Recovered/Resolved]
  - Rash generalised [Recovered/Resolved]
